FAERS Safety Report 6941818-0 (Version None)
Quarter: 2010Q3

REPORT INFORMATION
  Report Type: 
  Country: None (occurrence: None)
  Receive Date: 20100826
  Receipt Date: 20100816
  Transmission Date: 20110219
  Serious: Yes (Hospitalization, Other)
  Sender: FDA-Public Use
  Company Number: US-PFIZER INC-2010086757

PATIENT
  Sex: Male
  Weight: 69 kg

DRUGS (2)
  1. TIKOSYN [Suspect]
     Indication: CARDIAC DISORDER
     Dosage: 0.125 MG, 2X/DAY
     Route: 048
     Dates: start: 20100622, end: 20100708
  2. LASIX [Concomitant]
     Dosage: UNK

REACTIONS (6)
  - ABDOMINAL DISCOMFORT [None]
  - CARDIAC DISORDER [None]
  - DYSPNOEA [None]
  - NAUSEA [None]
  - PARAESTHESIA [None]
  - TREMOR [None]
